FAERS Safety Report 7727483-3 (Version None)
Quarter: 2011Q3

REPORT INFORMATION
  Report Type: 
  Country: None (occurrence: None)
  Receive Date: 20110902
  Receipt Date: 20110830
  Transmission Date: 20111222
  Serious: No
  Sender: FDA-Public Use
  Company Number: US-PFIZER INC-2011202507

PATIENT
  Sex: Female
  Weight: 45.4 kg

DRUGS (1)
  1. EFFEXOR XR [Suspect]
     Indication: DEPRESSION
     Dosage: 225 MG, 1X/DAY
     Route: 048
     Dates: start: 20090101, end: 20110827

REACTIONS (5)
  - WITHDRAWAL SYNDROME [None]
  - HOT FLUSH [None]
  - DIZZINESS [None]
  - DISORIENTATION [None]
  - PARAESTHESIA [None]
